FAERS Safety Report 10083341 (Version 29)
Quarter: 2016Q2

REPORT INFORMATION
  Report Type: Spontaneous
  Country: CA (occurrence: CA)
  Receive Date: 20140417
  Receipt Date: 20160525
  Transmission Date: 20160815
  Serious: Yes (Hospitalization, Other)
  Sender: FDA-Public Use
  Company Number: CA-ROCHE-1383205

PATIENT
  Age: 46 Year
  Sex: Male
  Weight: 88 kg

DRUGS (46)
  1. XOLAIR [Suspect]
     Active Substance: OMALIZUMAB
     Route: 058
     Dates: start: 20130729
  2. XOLAIR [Suspect]
     Active Substance: OMALIZUMAB
     Route: 058
     Dates: start: 20140602
  3. METHYLPHENIDATE HYDROCHLORIDE. [Suspect]
     Active Substance: METHYLPHENIDATE HYDROCHLORIDE
     Indication: PRODUCT USED FOR UNKNOWN INDICATION
     Route: 065
  4. AMIODARONE [Concomitant]
     Active Substance: AMIODARONE
  5. XOLAIR [Suspect]
     Active Substance: OMALIZUMAB
     Route: 058
     Dates: start: 20160408
  6. CORTISONE [Suspect]
     Active Substance: CORTISONE\HYDROCORTISONE
     Route: 048
     Dates: start: 20140826
  7. LIPITOR [Concomitant]
     Active Substance: ATORVASTATIN CALCIUM
  8. TECTA [Concomitant]
     Active Substance: PANTOPRAZOLE MAGNESIUM
  9. XOLAIR [Suspect]
     Active Substance: OMALIZUMAB
     Route: 058
     Dates: start: 20141021
  10. XOLAIR [Suspect]
     Active Substance: OMALIZUMAB
     Route: 058
     Dates: start: 20141216
  11. XOLAIR [Suspect]
     Active Substance: OMALIZUMAB
     Route: 058
     Dates: start: 20150728
  12. XOLAIR [Suspect]
     Active Substance: OMALIZUMAB
     Route: 058
     Dates: start: 20150825
  13. SINGULAIR [Concomitant]
     Active Substance: MONTELUKAST SODIUM
  14. ENDOCET [Concomitant]
     Active Substance: ACETAMINOPHEN\OXYCODONE HYDROCHLORIDE
  15. XOLAIR [Suspect]
     Active Substance: OMALIZUMAB
     Route: 058
     Dates: start: 20140826
  16. XOLAIR [Suspect]
     Active Substance: OMALIZUMAB
     Route: 058
     Dates: start: 20151020
  17. CORTISONE [Suspect]
     Active Substance: CORTISONE\HYDROCORTISONE
     Indication: BRONCHITIS
     Dosage: FOR 2 WEEKS
     Route: 048
     Dates: start: 201408
  18. CORTISONE [Suspect]
     Active Substance: CORTISONE\HYDROCORTISONE
     Route: 042
  19. ADVAIR HFA [Concomitant]
     Active Substance: FLUTICASONE PROPIONATE\SALMETEROL XINAFOATE
  20. SPIRIVA [Concomitant]
     Active Substance: TIOTROPIUM BROMIDE MONOHYDRATE
  21. PLAVIX [Concomitant]
     Active Substance: CLOPIDOGREL BISULFATE
  22. XOLAIR [Suspect]
     Active Substance: OMALIZUMAB
     Indication: ASTHMA
     Route: 058
     Dates: start: 20121207
  23. XOLAIR [Suspect]
     Active Substance: OMALIZUMAB
     Route: 058
     Dates: start: 20140114
  24. XOLAIR [Suspect]
     Active Substance: OMALIZUMAB
     Route: 058
     Dates: start: 20140211
  25. XOLAIR [Suspect]
     Active Substance: OMALIZUMAB
     Route: 058
     Dates: start: 20150113
  26. XOLAIR [Suspect]
     Active Substance: OMALIZUMAB
     Route: 058
     Dates: start: 20150706
  27. SALBUTAMOL [Concomitant]
     Active Substance: ALBUTEROL
  28. PREDNISONE. [Concomitant]
     Active Substance: PREDNISONE
     Route: 065
  29. XOLAIR [Suspect]
     Active Substance: OMALIZUMAB
     Route: 058
     Dates: start: 20130311
  30. XOLAIR [Suspect]
     Active Substance: OMALIZUMAB
     Route: 058
     Dates: start: 20150310
  31. XOLAIR [Suspect]
     Active Substance: OMALIZUMAB
     Route: 058
     Dates: start: 20160308
  32. CORTISONE [Suspect]
     Active Substance: CORTISONE\HYDROCORTISONE
     Route: 048
  33. FLOVENT [Concomitant]
     Active Substance: FLUTICASONE PROPIONATE
  34. CLARITIN [Concomitant]
     Active Substance: LORATADINE
  35. XOLAIR [Suspect]
     Active Substance: OMALIZUMAB
     Route: 058
     Dates: start: 20150602
  36. XOLAIR [Suspect]
     Active Substance: OMALIZUMAB
     Route: 058
     Dates: start: 20160209
  37. CARDIZEM [Concomitant]
     Active Substance: DILTIAZEM HYDROCHLORIDE
  38. NASONEX [Concomitant]
     Active Substance: MOMETASONE FUROATE
  39. QVAR [Concomitant]
     Active Substance: BECLOMETHASONE DIPROPIONATE
  40. AMLODIPINE [Concomitant]
     Active Substance: AMLODIPINE BESYLATE
  41. XOLAIR [Suspect]
     Active Substance: OMALIZUMAB
     Route: 058
     Dates: start: 20131119
  42. XOLAIR [Suspect]
     Active Substance: OMALIZUMAB
     Route: 058
     Dates: start: 20140408
  43. XOLAIR [Suspect]
     Active Substance: OMALIZUMAB
     Route: 058
     Dates: start: 20141119
  44. XOLAIR [Suspect]
     Active Substance: OMALIZUMAB
     Route: 058
     Dates: start: 20160502
  45. CORTISONE [Suspect]
     Active Substance: CORTISONE\HYDROCORTISONE
     Route: 048
     Dates: start: 20140826
  46. ABILIFY [Concomitant]
     Active Substance: ARIPIPRAZOLE

REACTIONS (45)
  - Suicidal ideation [Recovering/Resolving]
  - Dyspnoea [Not Recovered/Not Resolved]
  - Insomnia [Unknown]
  - Head discomfort [Unknown]
  - Alopecia [Unknown]
  - Peripheral swelling [Not Recovered/Not Resolved]
  - Pneumonia [Recovering/Resolving]
  - Intestinal polyp [Unknown]
  - Hallucination [Recovering/Resolving]
  - Lung infection [Unknown]
  - Respiratory tract infection fungal [Unknown]
  - Dyspnoea at rest [Unknown]
  - Rales [Unknown]
  - Respiratory rate increased [Recovered/Resolved]
  - Sputum retention [Unknown]
  - Painful respiration [Unknown]
  - Musculoskeletal chest pain [Unknown]
  - Increased bronchial secretion [Not Recovered/Not Resolved]
  - Productive cough [Not Recovered/Not Resolved]
  - Negative thoughts [Recovered/Resolved]
  - Respiratory tract infection [Unknown]
  - Depressed mood [Unknown]
  - Dyspnoea exertional [Unknown]
  - Heart rate increased [Not Recovered/Not Resolved]
  - Increased viscosity of bronchial secretion [Unknown]
  - Breath sounds abnormal [Unknown]
  - Gastric polyps [Unknown]
  - Bronchitis [Unknown]
  - Fatigue [Recovered/Resolved]
  - Chest discomfort [Unknown]
  - Respiratory disorder [Unknown]
  - Asthenia [Unknown]
  - Personality change [Recovering/Resolving]
  - Blood pressure increased [Not Recovered/Not Resolved]
  - Back pain [Unknown]
  - Rash [Recovering/Resolving]
  - Wound [Unknown]
  - Oedema peripheral [Unknown]
  - Bacterial infection [Unknown]
  - Intracranial aneurysm [Unknown]
  - Wheezing [Unknown]
  - Weight decreased [Unknown]
  - Lung disorder [Unknown]
  - Obstructive airways disorder [Unknown]
  - Tremor [Unknown]

NARRATIVE: CASE EVENT DATE: 201301
